FAERS Safety Report 9212786 (Version 1)
Quarter: 2013Q1

REPORT INFORMATION
  Report Type: Spontaneous
  Country: US (occurrence: None)
  Receive Date: 20120824
  Receipt Date: 20120824
  Transmission Date: 20140127
  Serious: Yes (Hospitalization)
  Sender: FDA-Public Use
  Company Number: A-US2011-57058

PATIENT
  Age: 25 Year
  Sex: Female
  Weight: 68 kg

DRUGS (3)
  1. VELETRI [Suspect]
     Dosage: 36 NG/KG , PER MIN , INTRAVENOUS
     Route: 042
     Dates: start: 20101120
  2. SILDENAFIL (SILDENAFIL CITRATE) [Concomitant]
  3. GABAPENTIN GABAPENTIN (GABAPENTIN) [Concomitant]

REACTIONS (5)
  - Device related infection [None]
  - Pyrexia [None]
  - Chills [None]
  - Blood culture positive [None]
  - Bacteraemia [None]
